FAERS Safety Report 12236881 (Version 7)
Quarter: 2016Q4

REPORT INFORMATION
  Report Type: Report from Study
  Country: US (occurrence: US)
  Receive Date: 20160405
  Receipt Date: 20161123
  Transmission Date: 20170207
  Serious: Yes (Other)
  Sender: FDA-Public Use
  Company Number: US-AMGEN-USASL2016039835

PATIENT
  Age: 73 Year
  Sex: Male

DRUGS (1)
  1. ENBREL [Suspect]
     Active Substance: ETANERCEPT
     Indication: RHEUMATOID ARTHRITIS
     Dosage: 50 MG, WEEKLY
     Route: 065
     Dates: start: 20160203

REACTIONS (23)
  - Condition aggravated [Not Recovered/Not Resolved]
  - Fatigue [Unknown]
  - Rheumatoid arthritis [Not Recovered/Not Resolved]
  - Joint swelling [Recovering/Resolving]
  - Mobility decreased [Not Recovered/Not Resolved]
  - Arthralgia [Unknown]
  - Weight decreased [Not Recovered/Not Resolved]
  - Incorrect product storage [Unknown]
  - Finger deformity [Not Recovered/Not Resolved]
  - Paraesthesia [Unknown]
  - Insomnia [Unknown]
  - Balance disorder [Unknown]
  - Thyroid disorder [Unknown]
  - Neuropathy peripheral [Unknown]
  - Grip strength decreased [Recovering/Resolving]
  - Asthenia [Not Recovered/Not Resolved]
  - Pain in extremity [Unknown]
  - Memory impairment [Unknown]
  - Hypoaesthesia [Unknown]
  - Dizziness [Unknown]
  - Musculoskeletal disorder [Unknown]
  - Sleep disorder due to a general medical condition [Unknown]
  - Drug dose omission [Unknown]

NARRATIVE: CASE EVENT DATE: 2016
